FAERS Safety Report 25423293 (Version 2)
Quarter: 2025Q2

REPORT INFORMATION
  Report Type: Spontaneous
  Country: US (occurrence: None)
  Receive Date: 20250611
  Receipt Date: 20250627
  Transmission Date: 20250717
  Serious: No
  Sender: INCYTE
  Company Number: US-INCYTE CORPORATION-2025IN006032

PATIENT

DRUGS (3)
  1. JAKAFI [Suspect]
     Active Substance: RUXOLITINIB
     Indication: Polycythaemia vera
     Dosage: 15 MILLIGRAM, BID
  2. JAKAFI [Suspect]
     Active Substance: RUXOLITINIB
     Dosage: 10 MILLIGRAM, BID
  3. NEMLUVIO [Concomitant]
     Active Substance: NEMOLIZUMAB-ILTO
     Indication: Product used for unknown indication
     Route: 065

REACTIONS (2)
  - Pruritus [Unknown]
  - Hypersomnia [Unknown]
